FAERS Safety Report 4353358-6 (Version None)
Quarter: 2004Q2

REPORT INFORMATION
  Report Type: 
  Country: None (occurrence: None)
  Receive Date: 20040505
  Receipt Date: 20040420
  Transmission Date: 20050107
  Serious: Yes (Other)
  Sender: FDA-Public Use
  Company Number: JP-JNJFOC-20040403231

PATIENT
  Age: 68 Year
  Sex: Male

DRUGS (5)
  1. ITRIZOLE [Suspect]
     Route: 049
  2. ITRIZOLE [Suspect]
     Indication: ONYCHOMYCOSIS
     Route: 049
  3. WARFARIN POTASSIUM [Concomitant]
     Indication: ARTERIOSCLEROSIS
     Route: 049
  4. AMLODIPINE BESYLATE [Concomitant]
     Indication: HYPERTENSION
     Route: 049
  5. ALLOPURINOL TAB [Concomitant]
     Indication: GOUT
     Route: 049

REACTIONS (2)
  - DEAFNESS [None]
  - PHARMACEUTICAL PRODUCT COMPLAINT [None]
